FAERS Safety Report 6208490-9 (Version None)
Quarter: 2009Q2

REPORT INFORMATION
  Report Type: 
  Country: None (occurrence: None)
  Receive Date: 20090529
  Receipt Date: 20090520
  Transmission Date: 20091009
  Serious: Yes (Hospitalization)
  Sender: FDA-Public Use
  Company Number: ES-PFIZER INC-2007069960

PATIENT
  Age: 77 Year

DRUGS (12)
  1. BLINDED *PLACEBO [Suspect]
     Indication: MALIGNANT NEOPLASM OF ISLETS OF LANGERHANS
     Dosage: 37.5 MG, 1X/DAY
     Route: 048
     Dates: start: 20070717, end: 20070816
  2. BLINDED SUNITINIB MALATE [Suspect]
     Indication: MALIGNANT NEOPLASM OF ISLETS OF LANGERHANS
     Dosage: 37.5 MG, 1X/DAY
     Route: 048
     Dates: start: 20070717, end: 20070816
  3. PREDNISONE [Concomitant]
     Dates: start: 20070716
  4. ACETAMINOPHEN [Concomitant]
     Dates: start: 20070716
  5. INDOMETHACIN [Concomitant]
     Dates: start: 20070716
  6. TRAMADOL HCL [Concomitant]
     Dates: start: 20070716
  7. IDEOS [Concomitant]
     Dates: start: 20070716
  8. ALENDRONATE SODIUM [Concomitant]
     Dates: start: 20070716
  9. METAMIZOLE [Concomitant]
     Dates: start: 20070716
  10. LIDOCAINE [Concomitant]
     Dates: start: 20070813
  11. HEXETIDINE [Concomitant]
     Dates: start: 20070813
  12. AMOXICILLIN AND CLAVULANATE POTASSIUM [Concomitant]
     Dates: start: 20070816

REACTIONS (2)
  - ANAL ABSCESS [None]
  - MUCOSAL INFLAMMATION [None]
